FAERS Safety Report 13803508 (Version 4)
Quarter: 2017Q3

REPORT INFORMATION
  Report Type: Report from Study
  Country: US (occurrence: US)
  Receive Date: 20170728
  Receipt Date: 20170928
  Transmission Date: 20171127
  Serious: Yes (Hospitalization, Other)
  Sender: FDA-Public Use
  Company Number: US-AMGEN-USASL2017109893

PATIENT
  Sex: Female
  Weight: 148.3 kg

DRUGS (5)
  1. ENBREL [Suspect]
     Active Substance: ETANERCEPT
     Indication: RHEUMATOID ARTHRITIS
     Dosage: 50 MG, QWK
     Route: 030
     Dates: start: 2008
  2. ENBREL [Suspect]
     Active Substance: ETANERCEPT
     Dosage: 50 MG, QWK
     Route: 030
     Dates: end: 2017
  3. HUMIRA [Suspect]
     Active Substance: ADALIMUMAB
     Indication: RHEUMATOID ARTHRITIS
     Route: 065
  4. LISINOPRIL AND HYDROCHLOROTHIAZIDE [Concomitant]
     Active Substance: HYDROCHLOROTHIAZIDE\LISINOPRIL
     Indication: HYPERTENSION
     Dosage: UNK, QD (20/25)
     Route: 065
     Dates: start: 1998
  5. LEVOTHYROXIN [Concomitant]
     Active Substance: LEVOTHYROXINE
     Indication: THYROID DISORDER
     Dosage: 200 MUG, QD
     Route: 065
     Dates: start: 2001

REACTIONS (22)
  - Cholecystitis infective [Not Recovered/Not Resolved]
  - Influenza [Unknown]
  - Contusion [Not Recovered/Not Resolved]
  - Mobility decreased [Unknown]
  - Meniscus injury [Unknown]
  - Incorrect route of drug administration [Unknown]
  - Lower limb fracture [Not Recovered/Not Resolved]
  - Drug effect decreased [Unknown]
  - Pyrexia [Recovered/Resolved]
  - Malaise [Unknown]
  - Sensitivity to weather change [Unknown]
  - Laryngitis [Unknown]
  - Pharyngitis streptococcal [Unknown]
  - Gastroenteritis viral [Recovered/Resolved]
  - Arthralgia [Unknown]
  - Limb mass [Unknown]
  - Hypothyroidism [Not Recovered/Not Resolved]
  - Uterine leiomyoma [Unknown]
  - Fall [Unknown]
  - Gait disturbance [Not Recovered/Not Resolved]
  - Ill-defined disorder [Unknown]
  - Weight increased [Unknown]

NARRATIVE: CASE EVENT DATE: 2007
